FAERS Safety Report 21039618 (Version 1)
Quarter: 2022Q3

REPORT INFORMATION
  Report Type: Spontaneous
  Country: FR (occurrence: FR)
  Receive Date: 20220704
  Receipt Date: 20220704
  Transmission Date: 20221027
  Serious: Yes (Other)
  Sender: FDA-Public Use
  Company Number: None

PATIENT
  Age: 44 Year
  Sex: Male
  Weight: 71 kg

DRUGS (1)
  1. DOXORUBICIN HYDROCHLORIDE [Suspect]
     Active Substance: DOXORUBICIN HYDROCHLORIDE
     Indication: Sarcoma
     Dosage: 57 MG
     Route: 042
     Dates: start: 20220608, end: 20220609

REACTIONS (2)
  - Administration site injury [Recovered/Resolved]
  - Extravasation [Recovered/Resolved]

NARRATIVE: CASE EVENT DATE: 20220608
